FAERS Safety Report 16728713 (Version 1)
Quarter: 2019Q3

REPORT INFORMATION
  Report Type: Report from Study
  Country: US (occurrence: US)
  Receive Date: 20190822
  Receipt Date: 20190822
  Transmission Date: 20191005
  Serious: Yes (Other)
  Sender: FDA-Public Use
  Company Number: US-TEVA-2019-US-1059060

PATIENT
  Sex: Female

DRUGS (1)
  1. AJOVY [Suspect]
     Active Substance: FREMANEZUMAB-VFRM
     Indication: MIGRAINE PROPHYLAXIS
     Route: 065
     Dates: start: 201802, end: 201906

REACTIONS (15)
  - Alopecia [Not Recovered/Not Resolved]
  - Ear injury [Not Recovered/Not Resolved]
  - Stomatitis [Not Recovered/Not Resolved]
  - Gingival abscess [Recovered/Resolved]
  - Swelling face [Unknown]
  - Dysphonia [Not Recovered/Not Resolved]
  - Erythema [Recovering/Resolving]
  - Ear pain [Not Recovered/Not Resolved]
  - Rash [Unknown]
  - Blister [Unknown]
  - Tongue discomfort [Recovered/Resolved]
  - Pyrexia [Not Recovered/Not Resolved]
  - Skin lesion [Not Recovered/Not Resolved]
  - Cellulitis [Unknown]
  - Hypoacusis [Not Recovered/Not Resolved]

NARRATIVE: CASE EVENT DATE: 2019
